FAERS Safety Report 18064933 (Version 4)
Quarter: 2020Q4

REPORT INFORMATION
  Report Type: Report from Study
  Country: US (occurrence: US)
  Receive Date: 20200724
  Receipt Date: 20201105
  Transmission Date: 20210113
  Serious: Yes (Hospitalization)
  Sender: FDA-Public Use
  Company Number: US-ROCHE-2644808

PATIENT
  Age: 65 Year
  Sex: Male
  Weight: 63.8 kg

DRUGS (27)
  1. COBIMETINIB. [Suspect]
     Active Substance: COBIMETINIB
     Route: 048
     Dates: start: 20200721
  2. KYTRIL [Concomitant]
     Active Substance: GRANISETRON HYDROCHLORIDE
  3. IMODIUM [Concomitant]
     Active Substance: LOPERAMIDE HYDROCHLORIDE
  4. GLUCOPHAGE [Concomitant]
     Active Substance: METFORMIN HYDROCHLORIDE
  5. ZOSYN [Concomitant]
     Active Substance: PIPERACILLIN SODIUM\TAZOBACTAM SODIUM
     Dosage: 3.375 GRAM IN SODIUM CHLORIDE 0.9% 50 ML INTRAVENOUS
     Route: 042
     Dates: start: 20200709
  6. PLASMALYTE A [Concomitant]
     Dosage: 1000 ML ONCE INTRAVENOUS
     Route: 042
     Dates: start: 20200709
  7. IOHEXOL [Concomitant]
     Active Substance: IOHEXOL
     Dosage: 350 MG IODINE/ML SOLUTION 150 ML ONCE INTRAVENOUS
     Route: 042
     Dates: start: 20200709
  8. COMPAZINE [Concomitant]
     Active Substance: PROCHLORPERAZINE MALEATE
  9. GLUCOSE [Concomitant]
     Active Substance: DEXTROSE
     Route: 048
     Dates: start: 20200709
  10. SODIUM CHLORIDE. [Concomitant]
     Active Substance: SODIUM CHLORIDE
     Dates: start: 20200709
  11. EMLA [Concomitant]
     Active Substance: LIDOCAINE\PRILOCAINE
     Dates: start: 20200629
  12. VITAMIN D3 [Concomitant]
     Active Substance: CHOLECALCIFEROL
     Dosage: FROM 09 JUL 2020 09:00
     Route: 048
     Dates: start: 20200709
  13. DEXTROSE. [Concomitant]
     Active Substance: DEXTROSE
     Route: 042
     Dates: start: 20200709
  14. PLASMALYTE A [Concomitant]
     Route: 042
     Dates: start: 20200709
  15. TYLENOL [Concomitant]
     Active Substance: ACETAMINOPHEN
     Dosage: FROM 09 JUL 2020 05:10
     Route: 048
  16. ZOSYN [Concomitant]
     Active Substance: PIPERACILLIN SODIUM\TAZOBACTAM SODIUM
     Dosage: AT 06:00 4.5 GRAM IN SODIUM CHLORIDE 0.9% 100 ML INTRAVENOUS EVERY 8 HOURS
     Route: 042
     Dates: start: 20200709
  17. NOVOLOG [Concomitant]
     Active Substance: INSULIN ASPART
     Dosage: THREE TIMES DAILY BEFORE MEALS SCHEDULED
     Route: 058
     Dates: start: 20200709
  18. VANCOCIN [Concomitant]
     Active Substance: VANCOMYCIN HYDROCHLORIDE
     Dosage: WATER 1 GRAM/200 ML INTRAVENOUS 1000 MG ONCE
     Route: 042
     Dates: start: 20200709
  19. CHOLECALCIFEROL [Concomitant]
     Active Substance: CHOLECALCIFEROL
  20. GLYBURIDE. [Concomitant]
     Active Substance: GLYBURIDE
  21. TYLENOL [Concomitant]
     Active Substance: ACETAMINOPHEN
     Dates: start: 20200708
  22. FLAGYL [Concomitant]
     Active Substance: METRONIDAZOLE\METRONIDAZOLE HYDROCHLORIDE
     Dosage: 500 MG/100 ML, FROM 09 JUL 2020 09:00
     Route: 042
     Dates: start: 20200709
  23. CREON [Concomitant]
     Active Substance: PANCRELIPASE AMYLASE\PANCRELIPASE LIPASE\PANCRELIPASE PROTEASE
     Dates: start: 20200331
  24. COBIMETINIB. [Suspect]
     Active Substance: COBIMETINIB
     Indication: PANCREATIC CARCINOMA
     Route: 048
     Dates: start: 20200707
  25. VANCOMYCIN [Concomitant]
     Active Substance: VANCOMYCIN
     Dosage: IN WATER 1 GRAM/200 ML INTRAVENOUS 1000 MG INTRAVENOUS EVERY 24 HOURS
     Route: 042
     Dates: start: 20200710
  26. ACTOS [Concomitant]
     Active Substance: PIOGLITAZONE HYDROCHLORIDE
  27. KLOR-CON [Concomitant]
     Active Substance: POTASSIUM CHLORIDE
     Route: 048
     Dates: start: 20200709

REACTIONS (1)
  - Sepsis [Recovered/Resolved]

NARRATIVE: CASE EVENT DATE: 20200709
